FAERS Safety Report 23234541 (Version 1)
Quarter: 2023Q4

REPORT INFORMATION
  Report Type: Spontaneous
  Country: US (occurrence: None)
  Receive Date: 20231127
  Receipt Date: 20231127
  Transmission Date: 20240110
  Serious: Yes (Death)
  Sender: FDA-Public Use
  Company Number: None

PATIENT
  Age: 25 Year
  Sex: Male

DRUGS (16)
  1. TOBRAMYCIN [Suspect]
     Active Substance: TOBRAMYCIN
     Dosage: FREQUENCY : TWICE A DAY;?
     Route: 055
     Dates: start: 20231026
  2. FISH OIL [Concomitant]
  3. IBUPROFEN [Concomitant]
     Active Substance: IBUPROFEN
  4. GEMFIBROZIL [Concomitant]
  5. ALBUTEROL [Concomitant]
     Active Substance: ALBUTEROL
  6. GLYCOPYROLATE [Concomitant]
  7. VITAMIN D3 [Concomitant]
  8. LANSOPRAZOLE [Concomitant]
  9. RUBINAMIDE [Concomitant]
  10. TOPIRAMATE [Concomitant]
  11. SODIUM CHLORIDE SOLUTION [Concomitant]
  12. XCOPRI [Concomitant]
  13. LOCASAMIDE SOLUTION [Concomitant]
  14. MUPIROCIN OINTMENT [Concomitant]
  15. CLONAZEPAM [Concomitant]
  16. CIPRO [Concomitant]
     Active Substance: CIPROFLOXACIN HYDROCHLORIDE

REACTIONS (1)
  - Death [None]
